FAERS Safety Report 6759831-5 (Version None)
Quarter: 2010Q2

REPORT INFORMATION
  Report Type: 
  Country: None (occurrence: None)
  Receive Date: 20100524
  Receipt Date: 20100414
  Transmission Date: 20101027
  Serious: No
  Sender: FDA-Public Use
  Company Number: 010286

PATIENT
  Sex: Male
  Weight: 68.1 kg

DRUGS (4)
  1. CIMZIA [Suspect]
     Indication: COLITIS ULCERATIVE
     Dosage: (SUBCUTANEOUS)
     Route: 058
     Dates: start: 20081201
  2. OPIUM /00040001/ [Concomitant]
  3. ERYTHROMYCIN [Concomitant]
  4. CIPRO [Concomitant]

REACTIONS (2)
  - DRUG EFFECT DECREASED [None]
  - MALAISE [None]
